FAERS Safety Report 25596026 (Version 1)
Quarter: 2025Q3

REPORT INFORMATION
  Report Type: Spontaneous
  Country: US (occurrence: None)
  Receive Date: 20250723
  Receipt Date: 20250723
  Transmission Date: 20251020
  Serious: Yes (Death)
  Sender: FDA-CTU
  Company Number: None

PATIENT
  Age: 51 Year
  Sex: Male
  Weight: 101 kg

DRUGS (6)
  1. CYCLOPHOSPHAMIDE [Suspect]
     Active Substance: CYCLOPHOSPHAMIDE
  2. CYTARABINE [Suspect]
     Active Substance: CYTARABINE
  3. SPRYCEL [Suspect]
     Active Substance: DASATINIB
  4. DEXAMETHASONE [Suspect]
     Active Substance: DEXAMETHASONE
  5. MESNA [Suspect]
     Active Substance: MESNA
  6. PONATINIB [Suspect]
     Active Substance: PONATINIB

REACTIONS (6)
  - Myocardial infarction [None]
  - Cardiac arrest [None]
  - Ventricular tachycardia [None]
  - Ventricular fibrillation [None]
  - Encephalopathy [None]
  - Electrocardiogram ST segment elevation [None]

NARRATIVE: CASE EVENT DATE: 20250717
